FAERS Safety Report 22307964 (Version 2)
Quarter: 2023Q2

REPORT INFORMATION
  Report Type: Spontaneous
  Country: DE (occurrence: DE)
  Receive Date: 20230511
  Receipt Date: 20230524
  Transmission Date: 20230722
  Serious: Yes (Hospitalization, Other)
  Sender: FDA-Public Use
  Company Number: DE-002147023-NVSC2022DE048155

PATIENT
  Age: 55 Year
  Sex: Male

DRUGS (14)
  1. NALOXONE HYDROCHLORIDE\TILIDINE HYDROCHLORIDE [Suspect]
     Active Substance: NALOXONE HYDROCHLORIDE\TILIDINE HYDROCHLORIDE
     Indication: Spinal fusion surgery
     Dosage: 200 MG (100/8 MG)
     Route: 065
     Dates: start: 2006
  2. NALOXONE HYDROCHLORIDE\TILIDINE HYDROCHLORIDE [Suspect]
     Active Substance: NALOXONE HYDROCHLORIDE\TILIDINE HYDROCHLORIDE
     Indication: Pain
     Dosage: (50/4 MG)
     Route: 065
  3. NALOXONE HYDROCHLORIDE\TILIDINE HYDROCHLORIDE [Suspect]
     Active Substance: NALOXONE HYDROCHLORIDE\TILIDINE HYDROCHLORIDE
     Dosage: (200/16 MG)
     Route: 065
  4. NALOXONE HYDROCHLORIDE\TILIDINE HYDROCHLORIDE [Suspect]
     Active Substance: NALOXONE HYDROCHLORIDE\TILIDINE HYDROCHLORIDE
     Dosage: (100/8 MG)
     Route: 065
  5. IBUPROFEN [Suspect]
     Active Substance: IBUPROFEN
     Indication: Pain
     Dosage: UNK
     Route: 065
  6. IBUPROFEN [Suspect]
     Active Substance: IBUPROFEN
     Indication: Back pain
  7. IBUPROFEN [Suspect]
     Active Substance: IBUPROFEN
     Indication: Somatic symptom disorder
  8. IBUPROFEN [Suspect]
     Active Substance: IBUPROFEN
     Indication: Mental disorder
  9. IBUPROFEN [Suspect]
     Active Substance: IBUPROFEN
     Indication: Failed back surgery syndrome
  10. NALOXONE HYDROCHLORIDE\OXYCODONE HYDROCHLORIDE [Suspect]
     Active Substance: NALOXONE HYDROCHLORIDE\OXYCODONE HYDROCHLORIDE
     Indication: Pain
     Dosage: UNK
     Route: 065
  11. NALOXONE HYDROCHLORIDE\TILIDINE HYDROCHLORIDE [Suspect]
     Active Substance: NALOXONE HYDROCHLORIDE\TILIDINE HYDROCHLORIDE
     Indication: Spinal fusion surgery
     Dosage: UNK
     Route: 065
  12. NALOXONE HYDROCHLORIDE\TILIDINE HYDROCHLORIDE [Suspect]
     Active Substance: NALOXONE HYDROCHLORIDE\TILIDINE HYDROCHLORIDE
     Indication: Pain
  13. CLONIXIN LYSINE [Suspect]
     Active Substance: CLONIXIN LYSINE
     Indication: Product used for unknown indication
     Dosage: UNK
     Route: 065
  14. OMEPRAZOLE [Concomitant]
     Active Substance: OMEPRAZOLE
     Indication: Product used for unknown indication
     Dosage: UNK
     Route: 065

REACTIONS (34)
  - Drug dependence [Recovered/Resolved with Sequelae]
  - Weight decreased [Recovered/Resolved]
  - Drug withdrawal syndrome [Recovered/Resolved with Sequelae]
  - Chills [Unknown]
  - Restlessness [Unknown]
  - Hallucination, visual [Unknown]
  - Delusion [Unknown]
  - Screaming [Unknown]
  - Paranoia [Unknown]
  - Delirium [Unknown]
  - Personality change [Unknown]
  - Aggression [Not Recovered/Not Resolved]
  - Irritability [Unknown]
  - Back pain [Unknown]
  - Pain [Not Recovered/Not Resolved]
  - Movement disorder [Recovering/Resolving]
  - Learning disability [Unknown]
  - Amnesia [Unknown]
  - Behaviour disorder [Unknown]
  - Headache [Not Recovered/Not Resolved]
  - Migraine [Not Recovered/Not Resolved]
  - Mental disorder [Unknown]
  - Spinal instability [Unknown]
  - Hepatic steatosis [Unknown]
  - Emotional disorder [Unknown]
  - Musculoskeletal stiffness [Unknown]
  - Dysgraphia [Unknown]
  - Tremor [Unknown]
  - Stress [Unknown]
  - Nightmare [Unknown]
  - Sleep disorder [Unknown]
  - Disturbance in attention [Unknown]
  - Post-traumatic stress disorder [Unknown]
  - Abdominal pain upper [Unknown]

NARRATIVE: CASE EVENT DATE: 20060101
